FAERS Safety Report 16749388 (Version 8)
Quarter: 2019Q4

REPORT INFORMATION
  Report Type: Spontaneous
  Country: US (occurrence: US)
  Receive Date: 20190828
  Receipt Date: 20191111
  Transmission Date: 20200122
  Serious: Yes (Other)
  Sender: FDA-Public Use
  Company Number: US-UNITED THERAPEUTICS-UNT-2019-014180

PATIENT
  Age: 61 Year
  Sex: Female
  Weight: 119.18 kg

DRUGS (8)
  1. ORENITRAM [Suspect]
     Active Substance: TREPROSTINIL
     Dosage: UNK
     Route: 048
  2. ORENITRAM [Suspect]
     Active Substance: TREPROSTINIL
     Indication: PULMONARY ARTERIAL HYPERTENSION
     Dosage: 7.5 MG, Q8H
     Route: 048
     Dates: start: 20190522
  3. ORENITRAM [Suspect]
     Active Substance: TREPROSTINIL
     Indication: PULMONARY ARTERIAL HYPERTENSION
     Dosage: UNK
     Route: 048
  4. ORENITRAM [Suspect]
     Active Substance: TREPROSTINIL
     Dosage: UNK
     Route: 048
  5. ORENITRAM [Suspect]
     Active Substance: TREPROSTINIL
     Dosage: 5 MG, TID
     Route: 048
  6. ORENITRAM [Suspect]
     Active Substance: TREPROSTINIL
     Dosage: UNK
     Route: 048
  7. ORENITRAM [Suspect]
     Active Substance: TREPROSTINIL
     Indication: PULMONARY ARTERIAL HYPERTENSION
     Dosage: UNK
     Route: 048
  8. ORENITRAM [Suspect]
     Active Substance: TREPROSTINIL
     Indication: PULMONARY ARTERIAL HYPERTENSION
     Dosage: UNK
     Route: 048

REACTIONS (32)
  - Pain in jaw [Not Recovered/Not Resolved]
  - Insulin resistance [Not Recovered/Not Resolved]
  - Aortic aneurysm [Unknown]
  - Urticaria [Unknown]
  - Weight fluctuation [Unknown]
  - Swelling [Unknown]
  - Sleep apnoea syndrome [Unknown]
  - Tachycardia [Unknown]
  - Blood pressure decreased [Not Recovered/Not Resolved]
  - Dyspnoea [Recovered/Resolved]
  - Palpitations [Unknown]
  - Dumping syndrome [Not Recovered/Not Resolved]
  - Peripheral swelling [Not Recovered/Not Resolved]
  - Malaise [Unknown]
  - Pruritus [Unknown]
  - Dyspepsia [Unknown]
  - Chest discomfort [Not Recovered/Not Resolved]
  - Oropharyngeal pain [Not Recovered/Not Resolved]
  - Anxiety [Unknown]
  - Rash [Not Recovered/Not Resolved]
  - Presyncope [Unknown]
  - Allergy to chemicals [Unknown]
  - Scar [Unknown]
  - Heart rate irregular [Unknown]
  - Condition aggravated [Unknown]
  - Asthenia [Unknown]
  - Abdominal discomfort [Unknown]
  - Oedema [Not Recovered/Not Resolved]
  - Ascites [Unknown]
  - Cholelithiasis [Not Recovered/Not Resolved]
  - Insomnia [Unknown]
  - Visual impairment [Unknown]

NARRATIVE: CASE EVENT DATE: 2019
